FAERS Safety Report 8027342-5 (Version None)
Quarter: 2012Q1

REPORT INFORMATION
  Report Type: 
  Country: None (occurrence: None)
  Receive Date: 20120105
  Receipt Date: 20120105
  Transmission Date: 20120608
  Serious: Yes (Other)
  Sender: FDA-Public Use
  Company Number: None

PATIENT
  Age: 49 Year
  Sex: Male
  Weight: 98.8842 kg

DRUGS (2)
  1. SIMVASTATIN [Suspect]
     Indication: HYPERLIPIDAEMIA
     Dosage: 20 MG QD P.O.
     Route: 048
     Dates: start: 20040101, end: 20050101
  2. PRAVASTATIN [Suspect]
     Dosage: 20 MG QD P.O.
     Route: 048
     Dates: start: 20050101, end: 20060101

REACTIONS (1)
  - MYALGIA [None]
